FAERS Safety Report 11867168 (Version 1)
Quarter: 2015Q4

REPORT INFORMATION
  Report Type: Spontaneous
  Country: US (occurrence: None)
  Receive Date: 20151223
  Receipt Date: 20151223
  Transmission Date: 20160305
  Serious: No
  Sender: FDA-Public Use
  Company Number: None

PATIENT
  Age: 43 Year
  Sex: Male
  Weight: 101.8 kg

DRUGS (1)
  1. HYDROMORPHONE [Suspect]
     Active Substance: HYDROMORPHONE
     Indication: PAIN
     Route: 058
     Dates: start: 20151011, end: 20151011

REACTIONS (3)
  - Dysphagia [None]
  - Somnolence [None]
  - Anaphylactic reaction [None]

NARRATIVE: CASE EVENT DATE: 20151011
